FAERS Safety Report 5642284-8 (Version None)
Quarter: 2008Q1

REPORT INFORMATION
  Report Type: 
  Country: None (occurrence: None)
  Receive Date: 20080226
  Receipt Date: 20080211
  Transmission Date: 20080703
  Serious: Yes (Other)
  Sender: FDA-Public Use
  Company Number: S08-SWE-00674-01

PATIENT
  Age: 59 Year
  Sex: Female

DRUGS (4)
  1. ESCITALOPRAM [Suspect]
     Indication: DEPRESSION
     Dosage: 15 MG QD PO
     Route: 048
  2. LAMICTAL [Suspect]
     Indication: DEPRESSION
     Dosage: 200 MG QD PO
     Route: 048
  3. LITHIONIT (LITHIUM SULFATE) [Concomitant]
  4. FOLACIN [Concomitant]

REACTIONS (3)
  - FATIGUE [None]
  - PANCYTOPENIA [None]
  - VITAMIN B12 DEFICIENCY [None]
